FAERS Safety Report 19874916 (Version 2)
Quarter: 2021Q4

REPORT INFORMATION
  Report Type: Spontaneous
  Country: DE (occurrence: DE)
  Receive Date: 20210923
  Receipt Date: 20211011
  Transmission Date: 20220303
  Serious: Yes (Other)
  Sender: FDA-Public Use
  Company Number: DE-ROCHE-2824472

PATIENT
  Age: 62 Year
  Sex: Male
  Weight: 80 kg

DRUGS (8)
  1. CARBOPLATIN [Suspect]
     Active Substance: CARBOPLATIN
     Indication: Non-small cell lung cancer
     Dosage: 600 MILLIGRAM, Q3W (IN COMBINATION WITH TECENTRIQ, CARBOPLATIN AND TAXA)
     Route: 042
     Dates: start: 20201020, end: 20210122
  2. TECENTRIQ [Suspect]
     Active Substance: ATEZOLIZUMAB
     Indication: Non-small cell lung cancer
     Dosage: AS MAINTENANCE WITH TECENTRIQ
     Route: 065
  3. TECENTRIQ [Suspect]
     Active Substance: ATEZOLIZUMAB
     Dosage: UNK
     Route: 065
  4. TECENTRIQ [Suspect]
     Active Substance: ATEZOLIZUMAB
     Dosage: 1200 MILLIGRAM, Q3W (IN COMBINATION WITH AVASTIN, CARBOPLATIN AND TAXAN)
     Route: 042
     Dates: start: 20201020, end: 202102
  5. AVASTIN [Suspect]
     Active Substance: BEVACIZUMAB
     Indication: Non-small cell lung cancer
     Dosage: UNK
     Route: 065
  6. AVASTIN [Suspect]
     Active Substance: BEVACIZUMAB
     Dosage: AS MAINTENANCE WITH TECENTRIQ
     Route: 065
  7. AVASTIN [Suspect]
     Active Substance: BEVACIZUMAB
     Dosage: 1200 MILLIGRAM (IN COMBINATION WITH TECENTRIQ, CARBOPLATIN AND TAXAN)
     Route: 042
     Dates: start: 20201020, end: 202102
  8. PACLITAXEL [Suspect]
     Active Substance: PACLITAXEL
     Indication: Non-small cell lung cancer
     Dosage: 392 MILLIGRAM, Q3W (IN COMBINATION WITH TECENTRIQ, AVASTIN AND CARBOPLATIN)
     Route: 042
     Dates: start: 20201020, end: 20210122

REACTIONS (4)
  - Metastases to meninges [Unknown]
  - Blindness unilateral [Unknown]
  - Gait disturbance [Unknown]
  - Dizziness [Unknown]

NARRATIVE: CASE EVENT DATE: 20210301
